FAERS Safety Report 7632038 (Version 3)
Quarter: 2013Q4

REPORT INFORMATION
  Report Type: Spontaneous
  Country: US (occurrence: US)
  Receive Date: 20101018
  Receipt Date: 20131022
  Transmission Date: 20140711
  Serious: Yes (Hospitalization, Other)
  Sender: FDA-Public Use
  Company Number: US-ROCHE-709246

PATIENT
  Age: 21 Year
  Sex: Female
  Weight: 52.2 kg

DRUGS (1)
  1. ACCUTANE [Suspect]
     Indication: ACNE
     Route: 065
     Dates: start: 19981130, end: 199904

REACTIONS (8)
  - Colitis ulcerative [Unknown]
  - Inflammatory bowel disease [Unknown]
  - Crohn^s disease [Unknown]
  - Attention deficit/hyperactivity disorder [Unknown]
  - Depression [Unknown]
  - Anal fissure [Unknown]
  - Intestinal obstruction [Unknown]
  - Gastrooesophageal reflux disease [Unknown]
